FAERS Safety Report 8814621 (Version 4)
Quarter: 2013Q1

REPORT INFORMATION
  Report Type: Spontaneous
  Country: US (occurrence: US)
  Receive Date: 20120928
  Receipt Date: 20130222
  Transmission Date: 20140127
  Serious: Yes (Hospitalization, Other)
  Sender: FDA-Public Use
  Company Number: US-JNJFOC-20120909348

PATIENT
  Sex: Female
  Weight: 58.97 kg

DRUGS (23)
  1. REMICADE [Suspect]
     Indication: CROHN^S DISEASE
     Route: 042
     Dates: start: 20070105
  2. VITAMIN D [Concomitant]
     Route: 048
     Dates: start: 20101005
  3. CALCIUM MAGNESIUM [Concomitant]
     Route: 065
     Dates: start: 20120816
  4. CYANOCOBALAMIN [Concomitant]
     Route: 065
     Dates: start: 20080221, end: 20111004
  5. PREDNISONE [Concomitant]
     Indication: CROHN^S DISEASE
     Route: 048
     Dates: start: 2004
  6. PREDNISONE [Concomitant]
     Indication: CROHN^S DISEASE
     Route: 048
     Dates: start: 20120830
  7. PREDNISONE [Concomitant]
     Indication: CROHN^S DISEASE
     Route: 048
     Dates: start: 20080303
  8. MULTIPLE VITAMIN [Concomitant]
     Indication: SHORT-BOWEL SYNDROME
     Route: 048
     Dates: start: 20050617
  9. MULTIPLE VITAMIN [Concomitant]
     Indication: SHORT-BOWEL SYNDROME
     Route: 048
     Dates: start: 1968
  10. SYNTHROID [Concomitant]
     Indication: HYPOTHYROIDISM
     Route: 048
     Dates: start: 20110117
  11. SYNTHROID [Concomitant]
     Indication: HYPOTHYROIDISM
     Route: 048
     Dates: start: 1968
  12. IRON [Concomitant]
     Route: 065
  13. VITAMIN B12 [Concomitant]
     Indication: MALABSORPTION
     Route: 050
     Dates: start: 1964
  14. VITAMIN B12 [Concomitant]
     Indication: MALABSORPTION
     Route: 060
     Dates: start: 201210
  15. PROBIOTICS [Concomitant]
     Indication: CROHN^S DISEASE
     Dosage: TO BE USED AS DIRECTED
     Route: 065
     Dates: start: 20100329
  16. CALCIUM/MAGNESIUM/ VITAMIN D3 [Concomitant]
     Indication: MALABSORPTION
     Route: 065
     Dates: start: 1967
  17. FLAXSEED OIL [Concomitant]
     Indication: MALABSORPTION
     Route: 048
     Dates: start: 2005
  18. FLAXSEED OIL [Concomitant]
     Indication: MALABSORPTION
     Route: 048
     Dates: start: 20070202
  19. FERROUS SULFATE [Concomitant]
     Route: 048
     Dates: end: 20110202
  20. CALCIUM [Concomitant]
     Route: 048
     Dates: start: 20110202
  21. LACTOSE INTOLERANT [Concomitant]
     Route: 065
     Dates: start: 20070323
  22. PAPAYA ENZYME [Concomitant]
     Dosage: DOSE: 2 WITH EACH MEAL
     Route: 048
     Dates: start: 20080303
  23. VITAMIN B COMPLEX [Concomitant]
     Route: 048
     Dates: start: 20111027

REACTIONS (9)
  - Basal cell carcinoma [Not Recovered/Not Resolved]
  - Nephropathy [Unknown]
  - Skin papilloma [Recovered/Resolved]
  - Dermatitis contact [Recovered/Resolved]
  - Nasopharyngitis [Recovered/Resolved]
  - Upper respiratory tract infection [Recovered/Resolved]
  - Wound [Recovering/Resolving]
  - Seborrhoeic dermatitis [Unknown]
  - Seborrhoeic keratosis [Unknown]
